FAERS Safety Report 5936375-1 (Version None)
Quarter: 2008Q4

REPORT INFORMATION
  Report Type: 
  Country: None (occurrence: None)
  Receive Date: 20081029
  Receipt Date: 20081029
  Transmission Date: 20090506
  Serious: Yes (Life-Threatening, Hospitalization)
  Sender: FDA-Public Use
  Company Number: None

PATIENT
  Sex: Female
  Weight: 105.6881 kg

DRUGS (12)
  1. INVEGA [Suspect]
     Indication: MAJOR DEPRESSION
     Dosage: 3 MG Q 2100 PO
     Route: 048
     Dates: start: 20081022, end: 20081024
  2. INVEGA [Suspect]
     Indication: MAJOR DEPRESSION
     Dosage: 6 MG Q 2100 PO
     Route: 048
     Dates: start: 20081022, end: 20081024
  3. ESCITALOPRAM [Concomitant]
  4. SYNTHROID [Concomitant]
  5. POTASSIUM CHLORIDE ER [Concomitant]
  6. HYDROCHLOROTHIAZIDE [Concomitant]
  7. OMEPRAZOLE [Concomitant]
  8. TEMAZEPAM [Concomitant]
  9. ZOLPIDEM [Concomitant]
  10. BENZTROPINE MESYLATE [Concomitant]
  11. PHENTERMINE [Concomitant]
  12. ADDERALL 10 [Concomitant]

REACTIONS (4)
  - DIZZINESS [None]
  - HYPOAESTHESIA [None]
  - PARAESTHESIA ORAL [None]
  - TONGUE DISORDER [None]
